FAERS Safety Report 23352945 (Version 1)
Quarter: 2023Q4

REPORT INFORMATION
  Report Type: Spontaneous
  Country: RO (occurrence: RO)
  Receive Date: 20231230
  Receipt Date: 20231230
  Transmission Date: 20240110
  Serious: Yes (Hospitalization, Other)
  Sender: FDA-Public Use
  Company Number: RO-PFIZER INC-PV202300202522

PATIENT
  Sex: Female
  Weight: 73 kg

DRUGS (4)
  1. IBANDRONIC ACID [Suspect]
     Active Substance: IBANDRONIC ACID
     Indication: Adjuvant therapy
     Dosage: UNK
     Route: 048
     Dates: start: 20180801
  2. FULVESTRANT [Suspect]
     Active Substance: FULVESTRANT
     Indication: Metastatic neoplasm
     Dosage: UNK
     Route: 048
     Dates: start: 20200619
  3. PALBOCICLIB [Suspect]
     Active Substance: PALBOCICLIB
     Indication: Breast cancer metastatic
     Dosage: 100 MILLIGRAM, CYCLICAL  (D1-D21)
     Route: 048
     Dates: start: 20200619
  4. PALBOCICLIB [Suspect]
     Active Substance: PALBOCICLIB
     Dosage: 75 MILLIGRAM, CYCLICAL(D1-D21)
     Route: 048
     Dates: start: 20210521

REACTIONS (2)
  - Anaemia [Recovering/Resolving]
  - Neutropenia [Not Recovered/Not Resolved]

NARRATIVE: CASE EVENT DATE: 20201103
